FAERS Safety Report 18940707 (Version 1)
Quarter: 2021Q1

REPORT INFORMATION
  Report Type: Spontaneous
  Country: TR (occurrence: TR)
  Receive Date: 20210225
  Receipt Date: 20210225
  Transmission Date: 20210420
  Serious: Yes (Life-Threatening, Hospitalization, Disabling, Other)
  Sender: FDA-Public Use
  Company Number: TR-UNIQUE PHARMACEUTICAL LABORATORIES-20210200009

PATIENT
  Age: 54 Year
  Sex: Male

DRUGS (1)
  1. FLUCONAZOLE UNSPECIFIED [Suspect]
     Active Substance: FLUCONAZOLE
     Indication: ONYCHOMYCOSIS
     Dosage: 200 MG/DAY FOR 1 MONTH

REACTIONS (9)
  - Immobile [Recovered/Resolved]
  - Gastrointestinal haemorrhage [Recovered/Resolved]
  - Off label use [Unknown]
  - Axonal and demyelinating polyneuropathy [Recovered/Resolved]
  - Prescription drug used without a prescription [Unknown]
  - Polyneuropathy [Recovered/Resolved]
  - Thrombotic thrombocytopenic purpura [Recovered/Resolved]
  - Acute kidney injury [Recovered/Resolved]
  - Confusional state [Recovered/Resolved]
